FAERS Safety Report 10252701 (Version 1)
Quarter: 2014Q2

REPORT INFORMATION
  Report Type: Spontaneous
  Country: US (occurrence: US)
  Receive Date: 20140623
  Receipt Date: 20140623
  Transmission Date: 20141212
  Serious: No
  Sender: FDA-Public Use
  Company Number: US-BAUSCH-BL-2013-005525

PATIENT
  Sex: Male

DRUGS (1)
  1. CYCLOPENTOLATE HYDROCHLORIDE OPHTHALMIC SOLUTION USP 1% [Suspect]
     Indication: PRODUCT USED FOR UNKNOWN INDICATION
     Dosage: DROP; OPHTHALMIC
     Route: 047
     Dates: start: 20131014

REACTIONS (4)
  - Ocular discomfort [Unknown]
  - Eye irritation [Unknown]
  - Photophobia [Unknown]
  - Altered visual depth perception [Unknown]
